FAERS Safety Report 17821620 (Version 1)
Quarter: 2020Q2

REPORT INFORMATION
  Report Type: Report from Study
  Country: US (occurrence: US)
  Receive Date: 20200525
  Receipt Date: 20200525
  Transmission Date: 20200714
  Serious: Yes (Other)
  Sender: FDA-Public Use
  Company Number: US-ASTELLAS-2020US016852

PATIENT
  Age: 56 Year
  Sex: Male

DRUGS (3)
  1. ENZALUTAMIDE [Suspect]
     Active Substance: ENZALUTAMIDE
     Indication: HORMONE-REFRACTORY PROSTATE CANCER
     Route: 048
     Dates: start: 202003
  2. ENZALUTAMIDE [Suspect]
     Active Substance: ENZALUTAMIDE
     Dosage: 80 MG, TWICE DAILY (2 DF, TWICE DAILY (ONE IN THE MORNING AND ONE AT NIGHT))
     Route: 048
     Dates: start: 20200430
  3. ENZALUTAMIDE [Suspect]
     Active Substance: ENZALUTAMIDE
     Dosage: 80 MG, ONCE DAILY (TWO A DAY)
     Route: 048

REACTIONS (6)
  - Mobility decreased [Unknown]
  - Cellulitis [Unknown]
  - Inappropriate schedule of product administration [Unknown]
  - Lymphoedema [Not Recovered/Not Resolved]
  - Neuralgia [Unknown]
  - Therapy change [Unknown]

NARRATIVE: CASE EVENT DATE: 20200430
